FAERS Safety Report 15275177 (Version 1)
Quarter: 2018Q3

REPORT INFORMATION
  Report Type: Spontaneous
  Country: US (occurrence: US)
  Receive Date: 20180814
  Receipt Date: 20180814
  Transmission Date: 20181010
  Serious: No
  Sender: FDA-Public Use
  Company Number: US-BAYER-2018-151688

PATIENT
  Sex: Male

DRUGS (3)
  1. NEULASTA [Concomitant]
     Active Substance: PEGFILGRASTIM
  2. CLARITIN [Suspect]
     Active Substance: LORATADINE
     Indication: BONE PAIN
  3. PARNATE [Concomitant]
     Active Substance: TRANYLCYPROMINE SULFATE

REACTIONS (1)
  - Product prescribing issue [Unknown]
